FAERS Safety Report 7833785-2 (Version None)
Quarter: 2011Q4

REPORT INFORMATION
  Report Type: 
  Country: None (occurrence: None)
  Receive Date: 20111024
  Receipt Date: 20111013
  Transmission Date: 20120403
  Serious: Yes (Other)
  Sender: FDA-Public Use
  Company Number: ES-ASTRAZENECA-2011SE60528

PATIENT
  Age: 60 Year
  Sex: Female

DRUGS (1)
  1. OMEPRAZOLE [Suspect]

REACTIONS (1)
  - CUTANEOUS LUPUS ERYTHEMATOSUS [None]
